FAERS Safety Report 21536047 (Version 1)
Quarter: 2022Q4

REPORT INFORMATION
  Report Type: Spontaneous
  Country: KR (occurrence: KR)
  Receive Date: 20221101
  Receipt Date: 20221101
  Transmission Date: 20230112
  Serious: Yes (Life-Threatening, Other)
  Sender: FDA-Public Use
  Company Number: KR-MYLANLABS-2022M1118754

PATIENT
  Age: 80 Year
  Sex: Female

DRUGS (3)
  1. LYRICA [Suspect]
     Active Substance: PREGABALIN
     Indication: Infection
     Dosage: 1 DOSAGE FORM, QD
     Route: 065
     Dates: start: 20190427, end: 20190428
  2. LYRICA [Suspect]
     Active Substance: PREGABALIN
     Indication: Inflammation
  3. LYRICA [Suspect]
     Active Substance: PREGABALIN
     Indication: Joint prosthesis user

REACTIONS (2)
  - Depressed level of consciousness [Recovered/Resolved]
  - Dizziness [Recovered/Resolved]

NARRATIVE: CASE EVENT DATE: 20190429
